FAERS Safety Report 15022365 (Version 1)
Quarter: 2018Q2

REPORT INFORMATION
  Report Type: Spontaneous
  Country: US (occurrence: US)
  Receive Date: 20180618
  Receipt Date: 20180618
  Transmission Date: 20180711
  Serious: No
  Sender: FDA-Public Use
  Company Number: US-009507513-1805USA014520

PATIENT
  Age: 18 Year
  Sex: Female

DRUGS (4)
  1. REMERON [Suspect]
     Active Substance: MIRTAZAPINE
     Indication: PAIN MANAGEMENT
     Route: 048
  2. HYDROMORPHONE [Concomitant]
     Active Substance: HYDROMORPHONE
     Indication: PAIN MANAGEMENT
  3. GABAPENTIN. [Concomitant]
     Active Substance: GABAPENTIN
     Indication: PAIN MANAGEMENT
  4. HYDROMORPHONE [Concomitant]
     Active Substance: HYDROMORPHONE
     Indication: ANALGESIC THERAPY

REACTIONS (1)
  - Product use in unapproved indication [Unknown]
